FAERS Safety Report 8786183 (Version 1)
Quarter: 2012Q4

REPORT INFORMATION
  Report Type: Report from Study
  Country: JP (occurrence: JP)
  Receive Date: 20120914
  Receipt Date: 20120914
  Transmission Date: 20130627
  Serious: Yes (Other)
  Sender: FDA-Public Use
  Company Number: JP-009507513-1209JPN000775

PATIENT

DRUGS (6)
  1. PEGINTRON [Suspect]
     Indication: HEPATITIS C
     Dosage: 1.5 Microgram per kilogram, UNK
     Route: 058
     Dates: start: 20120621
  2. REBETOL [Suspect]
     Indication: HEPATITIS C
     Dosage: 600 mg, UNK
     Route: 048
     Dates: start: 20120621, end: 20120720
  3. TELAVIC [Suspect]
     Indication: HEPATITIS C
     Dosage: 1500  mg, UNK
     Route: 048
     Dates: start: 20120621, end: 20120719
  4. TELAVIC [Suspect]
     Dosage: 1500 mg, UNK
     Route: 048
     Dates: start: 20120726
  5. MICARDIS [Concomitant]
     Indication: HYPERTENSION
     Dosage: 20 mg, UNK; formulation:POR
     Route: 048
  6. ZYLORIC [Concomitant]
     Dosage: 200 mg, UNK
     Route: 048
     Dates: start: 20120623

REACTIONS (1)
  - Renal failure acute [Recovering/Resolving]
